FAERS Safety Report 22840347 (Version 2)
Quarter: 2024Q1

REPORT INFORMATION
  Report Type: Spontaneous
  Country: BE (occurrence: BE)
  Receive Date: 20230819
  Receipt Date: 20240311
  Transmission Date: 20240409
  Serious: Yes (Hospitalization, Other)
  Sender: FDA-Public Use
  Company Number: BE-GRINDPROD-2023003071

PATIENT
  Age: 82 Year
  Sex: Female
  Weight: 59.6 kg

DRUGS (9)
  1. LENALIDOMIDE [Suspect]
     Active Substance: LENALIDOMIDE
     Indication: Follicular lymphoma
     Dosage: 10 MILLIGRAM A DAY ON DAYS 1 TO 21 (ON DAYS 1 TO 21  )
     Route: 048
     Dates: start: 20230404, end: 20230709
  2. RITUXIMAB [Suspect]
     Active Substance: RITUXIMAB
     Indication: Follicular lymphoma
     Dosage: 622 MG (375 MG/SQ. METER) FOR 5 CYCLES
     Route: 042
     Dates: start: 20230404
  3. RITUXIMAB [Suspect]
     Active Substance: RITUXIMAB
     Dosage: 623 MILLIGRAM
     Route: 042
     Dates: start: 20230626
  4. RITUXIMAB [Suspect]
     Active Substance: RITUXIMAB
     Dosage: 622 MILLIGRAM
     Route: 065
     Dates: start: 20230724
  5. PRIVIGEN [Concomitant]
     Active Substance: HUMAN IMMUNOGLOBULIN G
     Indication: Product used for unknown indication
     Dosage: UNK
     Route: 065
  6. ALENDRONIC ACID [Concomitant]
     Active Substance: ALENDRONIC ACID
     Indication: Product used for unknown indication
     Dosage: UNK
     Route: 065
  7. CETIRIZINE HYDROCHLORIDE [Concomitant]
     Active Substance: CETIRIZINE HYDROCHLORIDE
     Indication: Product used for unknown indication
     Dosage: UNK
     Route: 065
  8. Magnetop [Concomitant]
     Indication: Product used for unknown indication
     Dosage: UNK
     Route: 065
  9. ROSUVASTATIN [Concomitant]
     Active Substance: ROSUVASTATIN
     Indication: Product used for unknown indication
     Dosage: UNK
     Route: 065

REACTIONS (1)
  - Deep vein thrombosis [Recovered/Resolved]

NARRATIVE: CASE EVENT DATE: 20230710
